FAERS Safety Report 20656394 (Version 1)
Quarter: 2022Q1

REPORT INFORMATION
  Report Type: Spontaneous
  Country: US (occurrence: US)
  Receive Date: 20220331
  Receipt Date: 20220331
  Transmission Date: 20220423
  Serious: Yes (Other)
  Sender: FDA-Public Use
  Company Number: US-CELLTRION INC.-2022US003408

PATIENT

DRUGS (2)
  1. TRUXIMA [Suspect]
     Active Substance: RITUXIMAB-ABBS
     Indication: Systemic lupus erythematosus
     Dosage: 1000MG FREQUENCY DAY 1 AND 15 EVERY 6 MONTHS
  2. TRUXIMA [Suspect]
     Active Substance: RITUXIMAB-ABBS
     Dosage: 710 MG WEEKLY TIMES 4 WEEKS ADMINISTERED ON 10/7, 10/14, 10/20, 10/28

REACTIONS (2)
  - Systemic lupus erythematosus [Unknown]
  - Off label use [Unknown]
